FAERS Safety Report 7242543-1 (Version None)
Quarter: 2010Q4

REPORT INFORMATION
  Report Type: 
  Country: None (occurrence: None)
  Receive Date: 20101130
  Receipt Date: 20091117
  Transmission Date: 20110411
  Serious: Yes (Hospitalization)
  Sender: FDA-Public Use
  Company Number: 2009-200786-NL

PATIENT
  Age: 20 Year
  Sex: Female
  Weight: 77.1115 kg

DRUGS (2)
  1. NUVARING [Suspect]
     Indication: MENSTRUAL CYCLE MANAGEMENT
     Dosage: QM
     Dates: start: 20070101, end: 20070713
  2. IMITREX [Concomitant]

REACTIONS (2)
  - CEREBRAL ARTERY THROMBOSIS [None]
  - MENSTRUATION IRREGULAR [None]
